FAERS Safety Report 6492686-5 (Version None)
Quarter: 2009Q4

REPORT INFORMATION
  Report Type: 
  Country: None (occurrence: None)
  Receive Date: 20091211
  Receipt Date: 20091211
  Transmission Date: 20100525
  Serious: Yes (Other)
  Sender: FDA-Public Use
  Company Number: None

PATIENT
  Sex: Female
  Weight: 86.637 kg

DRUGS (1)
  1. DESIPRAMINE HCL [Suspect]
     Dosage: 150 MG DAILY ORAL (047)
     Route: 048
     Dates: start: 20090601, end: 20091001

REACTIONS (6)
  - ABNORMAL DREAMS [None]
  - ANGER [None]
  - ANXIETY [None]
  - CRYING [None]
  - HYPERHIDROSIS [None]
  - PARANOIA [None]
